FAERS Safety Report 21314300 (Version 4)
Quarter: 2025Q3

REPORT INFORMATION
  Report Type: Spontaneous
  Country: US (occurrence: US)
  Receive Date: 20220909
  Receipt Date: 20250902
  Transmission Date: 20251020
  Serious: No
  Sender: BIOGEN
  Company Number: US-BIOGEN-2019BI00786646

PATIENT
  Sex: Female

DRUGS (3)
  1. TYSABRI [Suspect]
     Active Substance: NATALIZUMAB
     Indication: Multiple sclerosis
     Dosage: INFUSED OVER 1 HOUR
     Route: 050
     Dates: start: 20191217
  2. TYSABRI [Suspect]
     Active Substance: NATALIZUMAB
     Route: 050
  3. TYSABRI [Suspect]
     Active Substance: NATALIZUMAB
     Route: 050
     Dates: start: 2019, end: 202206

REACTIONS (6)
  - Prescribed underdose [Not Recovered/Not Resolved]
  - Off label use [Recovered/Resolved]
  - Nervousness [Unknown]
  - Irritability [Unknown]
  - Tension [Unknown]
  - Pyrexia [Recovered/Resolved]
